FAERS Safety Report 7172873-3 (Version None)
Quarter: 2010Q4

REPORT INFORMATION
  Report Type: 
  Country: None (occurrence: None)
  Receive Date: 20101219
  Receipt Date: 20100215
  Transmission Date: 20110411
  Serious: No
  Sender: FDA-Public Use
  Company Number: US-AMGEN-KDL392828

PATIENT

DRUGS (12)
  1. ENBREL [Suspect]
     Indication: RHEUMATOID ARTHRITIS
     Dosage: 50 MG, QWK
     Route: 058
     Dates: start: 20091101, end: 20100211
  2. METHOTREXATE [Suspect]
     Dosage: 2.5 MG, 3 TIMES/WK
     Route: 048
     Dates: start: 20090201
  3. PREDNISONE [Suspect]
  4. FOLIC ACID [Concomitant]
  5. ESOMEPRAZOLE MAGNESIUM [Concomitant]
  6. INSULIN LISPRO [Concomitant]
  7. LEVEMIR [Concomitant]
  8. PRAMLINTIDE ACETATE [Concomitant]
  9. LORAZEPAM [Concomitant]
  10. DULOXETIME HYDROCHLORIDE [Concomitant]
  11. ESCITALOPRAM [Concomitant]
  12. TIZANIDINE HYDROCHLORIDE [Concomitant]

REACTIONS (1)
  - HERPES ZOSTER [None]
